FAERS Safety Report 14562391 (Version 1)
Quarter: 2018Q1

REPORT INFORMATION
  Report Type: Spontaneous
  Country: US (occurrence: US)
  Receive Date: 20180221
  Receipt Date: 20180221
  Transmission Date: 20180509
  Serious: Yes (Hospitalization)
  Sender: FDA-Public Use
  Company Number: None

PATIENT
  Age: 85 Year
  Weight: 72 kg

DRUGS (17)
  1. FUROSEMIDE. [Concomitant]
     Active Substance: FUROSEMIDE
  2. LIPITOR [Suspect]
     Active Substance: ATORVASTATIN CALCIUM
     Indication: PRODUCT USED FOR UNKNOWN INDICATION
     Dosage: ?          QUANTITY:1 TABLET(S);?
     Route: 048
     Dates: start: 20180207, end: 20180211
  3. VITAMIN B COMPLEX [Concomitant]
     Active Substance: CYANOCOBALAMIN\DEXPANTHENOL\NIACINAMIDE\PYRIDOXINE HYDROCHLORIDE\RIBOFLAVIN 5^-PHOSPHATE SODIUM\THIAMINE HYDROCHLORIDE\VITAMIN B COMPLEX
  4. VITAMIN E (DL-TOCOPHEROL) [Concomitant]
  5. VITAMIN B3 [Concomitant]
     Active Substance: NIACIN
  6. VITAMIN B12 [Concomitant]
     Active Substance: CYANOCOBALAMIN
  7. HAWTHORN EXT [Concomitant]
  8. RIBOSE [Concomitant]
     Active Substance: DIETARY SUPPLEMENT
  9. LISINOPRIL. [Concomitant]
     Active Substance: LISINOPRIL
  10. VITAMIN C [Concomitant]
     Active Substance: ASCORBIC ACID
  11. TAURINE [Concomitant]
     Active Substance: TAURINE
  12. VITAMIN A [Concomitant]
     Active Substance: VITAMIN A
  13. K2 [Concomitant]
     Active Substance: JWH-018
  14. ASA [Concomitant]
     Active Substance: ASPIRIN
  15. SYNTHROID [Concomitant]
     Active Substance: LEVOTHYROXINE SODIUM
  16. KCL [Concomitant]
     Active Substance: POTASSIUM CHLORIDE
  17. VITAMIN D3 [Concomitant]
     Active Substance: CHOLECALCIFEROL

REACTIONS (3)
  - Agitation [None]
  - Cardiac failure congestive [None]
  - Confusional state [None]

NARRATIVE: CASE EVENT DATE: 20180210
